FAERS Safety Report 12349030 (Version 3)
Quarter: 2016Q2

REPORT INFORMATION
  Report Type: Report from Study
  Country: US (occurrence: US)
  Receive Date: 20160509
  Receipt Date: 20160621
  Transmission Date: 20160815
  Serious: Yes (Hospitalization)
  Sender: FDA-Public Use
  Company Number: US-JNJFOC-20160501909

PATIENT
  Age: 60 Year
  Sex: Female
  Weight: 68.04 kg

DRUGS (1)
  1. REMICADE [Suspect]
     Active Substance: INFLIXIMAB
     Indication: CROHN^S DISEASE
     Route: 042
     Dates: start: 20141105

REACTIONS (11)
  - Clostridium difficile infection [Unknown]
  - Syncope [Recovered/Resolved]
  - Diarrhoea [Recovered/Resolved]
  - Musculoskeletal stiffness [Not Recovered/Not Resolved]
  - Colectomy [Unknown]
  - Ileostomy [Unknown]
  - Intestinal obstruction [Recovered/Resolved]
  - Arthralgia [Not Recovered/Not Resolved]
  - Weight increased [Not Recovered/Not Resolved]
  - Asthenia [Recovering/Resolving]
  - Scar [Unknown]

NARRATIVE: CASE EVENT DATE: 201412
